FAERS Safety Report 6073678-7 (Version None)
Quarter: 2009Q1

REPORT INFORMATION
  Report Type: 
  Country: None (occurrence: None)
  Receive Date: 20090211
  Receipt Date: 20090205
  Transmission Date: 20090719
  Serious: Yes (Other)
  Sender: FDA-Public Use
  Company Number: GB-PFIZER INC-2009166982

PATIENT

DRUGS (2)
  1. LIPITOR [Suspect]
     Indication: TYPE IIA HYPERLIPIDAEMIA
     Route: 048
  2. SIMVASTATIN [Suspect]
     Indication: TYPE IIA HYPERLIPIDAEMIA

REACTIONS (4)
  - BALANCE DISORDER [None]
  - FALL [None]
  - HYPOAESTHESIA [None]
  - INTESTINAL OBSTRUCTION [None]
